FAERS Safety Report 15022336 (Version 2)
Quarter: 2019Q2

REPORT INFORMATION
  Report Type: Spontaneous
  Country: US (occurrence: US)
  Receive Date: 20180618
  Receipt Date: 20190613
  Transmission Date: 20190711
  Serious: Yes (Other)
  Sender: FDA-Public Use
  Company Number: US-PFIZER INC-2018243197

PATIENT
  Age: 51 Year
  Sex: Male

DRUGS (3)
  1. MICAFUNGIN. [Suspect]
     Active Substance: MICAFUNGIN SODIUM
     Indication: CLOSTRIDIUM DIFFICILE INFECTION
     Dosage: UNK
  2. METRONIDAZOLE. [Suspect]
     Active Substance: METRONIDAZOLE
     Indication: CLOSTRIDIUM DIFFICILE INFECTION
     Dosage: UNK
     Route: 042
  3. ERTAPENEM. [Concomitant]
     Active Substance: ERTAPENEM SODIUM
     Dosage: UNK

REACTIONS (4)
  - Pleural effusion [Recovering/Resolving]
  - Chest pain [Recovering/Resolving]
  - Condition aggravated [Recovering/Resolving]
  - Respiratory distress [Recovering/Resolving]
